FAERS Safety Report 24430264 (Version 2)
Quarter: 2024Q4

REPORT INFORMATION
  Report Type: Report from Study
  Country: TW (occurrence: TW)
  Receive Date: 20241013
  Receipt Date: 20241106
  Transmission Date: 20250115
  Serious: Yes (Hospitalization)
  Sender: JOHNSON AND JOHNSON
  Company Number: TW-JNJFOC-20241008065

PATIENT
  Age: 55 Year
  Sex: Female

DRUGS (1)
  1. AMIVANTAMAB [Suspect]
     Active Substance: AMIVANTAMAB
     Indication: Product used for unknown indication
     Route: 065
     Dates: start: 20240910

REACTIONS (4)
  - Diarrhoea [Unknown]
  - Decubitus ulcer [Unknown]
  - Thrombosis [Unknown]
  - Adverse event [Unknown]
